FAERS Safety Report 7773309-1 (Version None)
Quarter: 2011Q3

REPORT INFORMATION
  Report Type: 
  Country: None (occurrence: None)
  Receive Date: 20110922
  Receipt Date: 20110912
  Transmission Date: 20111222
  Serious: Yes (Death, Hospitalization)
  Sender: FDA-Public Use
  Company Number: GR-TEVA-301086ISR

PATIENT
  Sex: Male

DRUGS (52)
  1. DEPON [Concomitant]
     Dosage: 1500 MILLIGRAM;
     Dates: start: 20101125
  2. ZYVOX [Concomitant]
     Indication: RESPIRATORY TRACT INFECTION
     Dosage: 1200 MILLIGRAM;
     Route: 042
     Dates: start: 20110325
  3. SEPTRA [Concomitant]
     Indication: RESPIRATORY TRACT INFECTION
     Dosage: 4800 MILLIGRAM;
     Route: 042
     Dates: start: 20110321
  4. MEROPENEM [Concomitant]
     Dosage: 3 GRAM;
     Dates: start: 20110407
  5. ARIXTRA [Concomitant]
     Indication: PROPHYLAXIS
     Dosage: 2.5 MILLIGRAM;
     Dates: start: 20110406
  6. LASIX [Concomitant]
     Dosage: 20 MILLIGRAM;
     Dates: start: 20110323
  7. MESULID [Concomitant]
     Indication: PAIN
     Dosage: 100 MILLIGRAM;
     Route: 048
     Dates: start: 20110102
  8. PRAVACHOL [Concomitant]
     Indication: CORONARY ARTERY DISEASE
     Dosage: 20 MILLIGRAM;
     Route: 048
     Dates: start: 20061102
  9. NEBIVOLOL HCL [Concomitant]
     Indication: CARDIOVASCULAR EVENT PROPHYLAXIS
     Dosage: 2.5 MILLIGRAM;
     Dates: start: 20110323
  10. COLISTIN [Concomitant]
     Indication: RESPIRATORY TRACT INFECTION
     Dosage: 2 CENTIMETER
     Route: 042
     Dates: start: 20110407
  11. CIPROXIN NOS [Concomitant]
     Indication: PROPHYLAXIS
     Dosage: 250 MILLIGRAM; 06-OCT-2010
     Route: 048
  12. VOLTAREN [Concomitant]
     Indication: CANCER PAIN
     Route: 061
     Dates: start: 20090701
  13. LERCANIDIPINE [Concomitant]
     Indication: HYPERTENSION
     Dosage: 10 MILLIGRAM;
     Route: 048
     Dates: start: 20061102
  14. LERCANIDIPINE [Concomitant]
     Indication: CARDIOVASCULAR EVENT PROPHYLAXIS
     Dosage: 20 MILLIGRAM;
     Dates: start: 20110321
  15. DEPON [Concomitant]
     Dosage: 500 MILLIGRAM;
     Dates: start: 20101130
  16. SOLU-CORTEF [Concomitant]
     Dosage: 375 MILLIGRAM;
     Dates: start: 20110407
  17. VOLTAREN [Concomitant]
     Indication: PAIN
     Dosage: 75 MILLIGRAM;
     Route: 030
     Dates: start: 20110102
  18. TARGOCID [Concomitant]
     Indication: RESPIRATORY TRACT INFECTION
     Dosage: 800 MILLIGRAM;
     Route: 042
     Dates: start: 20110321
  19. LORDIN [Concomitant]
     Indication: GASTROINTESTINAL DISORDER THERAPY
     Dosage: 40 MILLIGRAM;
     Route: 042
     Dates: start: 20110406
  20. ABIRATERONE ACETATE- BLINDED (ABIRATERONE ACETATE) / PLACEBO [Suspect]
     Indication: PROSTATE CANCER METASTATIC
     Route: 048
     Dates: start: 20100423, end: 20110321
  21. ARVEKAP [Concomitant]
     Indication: PROSTATE CANCER METASTATIC
     Route: 030
     Dates: start: 20060501
  22. DEPON [Concomitant]
     Indication: BONE PAIN
     Route: 048
     Dates: start: 20100423
  23. DEPON [Concomitant]
     Dosage: 1000 MILLIGRAM;
     Dates: start: 20110222
  24. DEXATON (DEXAMETHASONE) [Concomitant]
     Indication: METASTASES TO SPINE
     Dosage: 24 MILLIGRAM;
     Route: 042
     Dates: start: 20110321
  25. PIPERACILLIN AND TAZOBACTAM [Concomitant]
     Indication: RESPIRATORY TRACT INFECTION
     Dosage: 9 MILLIGRAM;
     Route: 042
     Dates: start: 20110324
  26. ATROVENT [Concomitant]
     Indication: DYSPNOEA
     Dosage: 40 ML;
     Route: 055
     Dates: start: 20110321
  27. LASIX [Concomitant]
     Indication: PROPHYLAXIS
     Route: 042
     Dates: start: 20110321
  28. LASIX [Concomitant]
     Dosage: 40 MILLIGRAM;
     Dates: start: 20110325
  29. LONALGAL [Concomitant]
     Indication: CANCER PAIN
     Dosage: 1590 MILLIGRAM;
     Route: 048
     Dates: start: 20110323
  30. PREDNISOLONE [Suspect]
     Indication: PROSTATE CANCER METASTATIC
     Route: 048
     Dates: start: 20100423
  31. NEBIVOLOL HCL [Concomitant]
     Indication: CORONARY ARTERY DISEASE
     Route: 048
     Dates: start: 20061102
  32. VFEND [Concomitant]
     Dosage: 400 MILLIGRAM;
     Dates: start: 20110407
  33. ARIXTRA [Concomitant]
     Indication: THROMBOSIS PROPHYLAXIS
     Dosage: 7.5 MILLIGRAM;
     Route: 058
     Dates: start: 20110321
  34. DILTIAZEM HCL [Concomitant]
     Indication: CARDIOVASCULAR EVENT PROPHYLAXIS
     Dosage: 180 MILLIGRAM;
     Route: 048
     Dates: start: 20110324
  35. PLAVIX [Concomitant]
     Dosage: 75 MILLIGRAM;
     Route: 048
     Dates: start: 20061102
  36. DEPON [Concomitant]
     Indication: BACK PAIN
     Dates: start: 20100617
  37. DEPON [Concomitant]
     Dosage: 2000 MILLIGRAM;
     Dates: start: 20110101
  38. VFEND [Concomitant]
     Indication: RESPIRATORY TRACT INFECTION
     Dosage: 1200 MILLIGRAM;
     Route: 042
     Dates: start: 20110324
  39. NEXIUM [Concomitant]
     Indication: GASTROINTESTINAL DISORDER THERAPY
     Dosage: 40 MILLIGRAM;
     Route: 042
     Dates: start: 20110325
  40. ZURCAZOL [Concomitant]
     Indication: GASTROINTESTINAL DISORDER THERAPY
     Dosage: 80 MILLIGRAM;
     Route: 042
     Dates: start: 20110321
  41. PRAVACHOL [Concomitant]
     Indication: PROPHYLAXIS
     Dosage: 40 MILLIGRAM;
     Dates: start: 20110322
  42. DEPON [Concomitant]
     Indication: CANCER PAIN
     Dosage: 2000 MILLIGRAM;
     Dates: start: 20101104
  43. SEPTRA [Concomitant]
     Dosage: 4800 MILLIGRAM;
     Dates: start: 20110407
  44. BRIKLIN [Concomitant]
     Indication: RESPIRATORY TRACT INFECTION
     Dosage: 750 MILLIGRAM;
     Route: 042
     Dates: start: 20110407
  45. DUPHALAC [Concomitant]
     Indication: CONSTIPATION
     Dosage: 20 CENTIMETER
     Route: 048
     Dates: start: 20110323
  46. ARVEKAP [Concomitant]
     Indication: HORMONE THERAPY
     Dates: start: 20100423
  47. BACTRIMEL [Concomitant]
     Indication: RESPIRATORY TRACT INFECTION
     Dosage: 4800 MILLIGRAM;
     Route: 042
     Dates: start: 20110322
  48. MEROPENEM [Concomitant]
     Indication: RESPIRATORY TRACT INFECTION
     Dosage: 1500 MILLIGRAM;
     Dates: start: 20110324
  49. PULMICORT [Concomitant]
     Dosage: 2 MILLIGRAM;
  50. ARIXTRA [Concomitant]
     Dosage: 2.5 MILLIGRAM;
     Dates: start: 20110407
  51. SOLU-CORTEF [Concomitant]
     Indication: ACUTE RESPIRATORY DISTRESS SYNDROME
     Dosage: 250 MILLIGRAM;
     Route: 042
     Dates: start: 20110406
  52. CIPROXIN NOS [Concomitant]
     Indication: RESPIRATORY TRACT INFECTION
     Dosage: 800 MILLIGRAM;
     Route: 042
     Dates: start: 20110321

REACTIONS (2)
  - RESPIRATORY TRACT INFECTION [None]
  - RESPIRATORY FAILURE [None]
